FAERS Safety Report 7532227-4 (Version None)
Quarter: 2011Q2

REPORT INFORMATION
  Report Type: 
  Country: None (occurrence: None)
  Receive Date: 20110608
  Receipt Date: 20110526
  Transmission Date: 20111010
  Serious: Yes (Other)
  Sender: FDA-Public Use
  Company Number: PHHY2011IL48380

PATIENT
  Age: 62 Year
  Sex: Female

DRUGS (9)
  1. GLYBURIDE [Concomitant]
     Dosage: UNK
  2. BISOPROLOL FUMARATE [Suspect]
     Dosage: 2.5 MG, UNK
  3. TETRYZOLINE HYDROCHLORIDE [Concomitant]
     Indication: DRY EYE
     Dosage: UNK
     Route: 047
  4. LIPITOR [Concomitant]
     Dosage: UNK
  5. LOSACOR [Concomitant]
     Dosage: UNK
  6. LEVOTHYROXINE SODIUM [Concomitant]
     Dosage: UNK
  7. CILAZAPRIL [Concomitant]
     Dosage: 5 MG, DAILY
  8. PLAQUENIL [Concomitant]
     Dosage: 200 MG, DAILY
  9. SALAGEN [Interacting]
     Indication: DRY MOUTH
     Dosage: 5 MG, DAILY
     Route: 048

REACTIONS (5)
  - HEMIPLEGIA [None]
  - ASTHENIA [None]
  - DRUG INTERACTION [None]
  - DIZZINESS [None]
  - HEADACHE [None]
